FAERS Safety Report 4678771-9 (Version None)
Quarter: 2005Q2

REPORT INFORMATION
  Report Type: 
  Country: None (occurrence: None)
  Receive Date: 20050223
  Receipt Date: 20050223
  Transmission Date: 20051028
  Serious: No
  Sender: FDA-Public Use
  Company Number: None

PATIENT
  Age: 65 Year
  Sex: Female
  Weight: 154.223 kg

DRUGS (2)
  1. TRAMADOL, 50 MG [Suspect]
     Indication: FIBROMYALGIA
     Dosage: ONE AM , 2 PM ONE PRN
     Dates: start: 20020401, end: 20020901
  2. TRAMADOL, 50 MG [Suspect]
     Indication: PAIN
     Dosage: ONE AM , 2 PM ONE PRN
     Dates: start: 20020401, end: 20020901

REACTIONS (3)
  - DRUG INEFFECTIVE [None]
  - INADEQUATE ANALGESIA [None]
  - PHARMACEUTICAL PRODUCT COMPLAINT [None]
